FAERS Safety Report 6362068-5 (Version None)
Quarter: 2009Q3

REPORT INFORMATION
  Report Type: 
  Country: None (occurrence: None)
  Receive Date: 20090918
  Receipt Date: 20090909
  Transmission Date: 20100115
  Serious: Yes (Other)
  Sender: FDA-Public Use
  Company Number: PHHY2009BR39066

PATIENT
  Sex: Female
  Weight: 62 kg

DRUGS (11)
  1. EXELON [Suspect]
     Indication: CONFUSIONAL STATE
     Dosage: 1 PATCH EVERY 24 HOURS
     Route: 062
     Dates: start: 20090825
  2. PROLOPA [Concomitant]
     Indication: PARKINSON'S DISEASE
     Dosage: 1/2 TABLET 4 TIMES/DAY
     Route: 048
  3. EBIXA [Concomitant]
     Indication: CEREBRAL DISORDER
     Dosage: 1 TABLET/DAY
     Route: 048
  4. SYNTHROID [Concomitant]
     Indication: THYROID DISORDER
     Dosage: 1 TABLET (25 MCG)/DAY
     Route: 048
  5. OMEPRAZOLE [Concomitant]
     Indication: ABDOMINAL SYMPTOM
     Dosage: 1 TABLET/DAY
     Route: 048
  6. BENICAR [Concomitant]
     Indication: BLOOD PRESSURE ABNORMAL
     Dosage: 1 TABLET/DAY
     Route: 048
  7. MANTIDAN [Concomitant]
     Indication: PARKINSON'S DISEASE
     Dosage: 1/2 TABLET IN AM AND 1/2 TABLET PM
     Route: 048
  8. NIMODIPINE [Concomitant]
     Indication: CEREBROVASCULAR DISORDER
     Dosage: 1 TABLET/DAY
     Route: 048
  9. SEROQUEL [Concomitant]
     Indication: CONFUSIONAL STATE
     Dosage: ? TABLET AT 2:00 PM - ? TABLETS AT 4:00 PM AND 1 TABLET AT NIGHT
     Route: 048
  10. CARBOLITIUM [Concomitant]
     Indication: SODIUM RETENTION
     Dosage: 1 TABLET ON A DAY AND ? TABLET IN THE NEXT DAY
     Route: 048
  11. CALCIUM CITRATE W/COLECALCIFEROL [Concomitant]
     Indication: CALCIUM DEFICIENCY
     Dosage: UNK
     Route: 048

REACTIONS (4)
  - ABDOMINAL PAIN [None]
  - COORDINATION ABNORMAL [None]
  - MOTOR DYSFUNCTION [None]
  - VISUAL ACUITY REDUCED [None]
